FAERS Safety Report 4883102-5 (Version None)
Quarter: 2006Q1

REPORT INFORMATION
  Report Type: 
  Country: None (occurrence: None)
  Receive Date: 20060113
  Receipt Date: 20060105
  Transmission Date: 20060701
  Serious: Yes (Life-Threatening, Hospitalization)
  Sender: FDA-Public Use
  Company Number: 2006-01-0144

PATIENT
  Age: 10 Month
  Sex: Male
  Weight: 9.9 kg

DRUGS (2)
  1. CELESTONE [Suspect]
     Indication: NASOPHARYNGITIS
     Dosage: UNKNOWN ORAL
     Route: 048
     Dates: start: 20050101, end: 20050201
  2. ADVIL [Suspect]
     Indication: NASOPHARYNGITIS
     Dosage: UNKNOWN ORAL
     Route: 048
     Dates: start: 20050101, end: 20050201

REACTIONS (15)
  - BLOOD PRESSURE SYSTOLIC DECREASED [None]
  - COUGH [None]
  - DISEASE PROGRESSION [None]
  - DYSPNOEA [None]
  - ECZEMA [None]
  - HAEMODYNAMIC INSTABILITY [None]
  - HEART RATE INCREASED [None]
  - INFECTION [None]
  - INFLAMMATION [None]
  - LARYNGEAL OEDEMA [None]
  - LYMPHADENOPATHY [None]
  - OEDEMA PERIPHERAL [None]
  - PYREXIA [None]
  - SKIN NECROSIS [None]
  - VASCULAR PURPURA [None]
